FAERS Safety Report 14907266 (Version 1)
Quarter: 2018Q2

REPORT INFORMATION
  Report Type: Spontaneous
  Country: FR (occurrence: FR)
  Receive Date: 20180517
  Receipt Date: 20180517
  Transmission Date: 20180711
  Serious: Yes (Other)
  Sender: FDA-Public Use
  Company Number: FR-MERCK KGAA-2047975

PATIENT
  Sex: Female

DRUGS (1)
  1. NOVOTHYROX [Suspect]
     Active Substance: LEVOTHYROXINE SODIUM
     Indication: PRODUCT USED FOR UNKNOWN INDICATION

REACTIONS (16)
  - Fatigue [None]
  - Arthralgia [None]
  - Diarrhoea [None]
  - Headache [None]
  - Decreased activity [None]
  - Asthenia [None]
  - Myalgia [None]
  - Anger [None]
  - Abdominal pain upper [None]
  - Sleep disorder [None]
  - Personal relationship issue [None]
  - General physical health deterioration [None]
  - Mood swings [None]
  - Dizziness [None]
  - Palpitations [None]
  - Nausea [None]
